FAERS Safety Report 5603361-0 (Version None)
Quarter: 2008Q1

REPORT INFORMATION
  Report Type: 
  Country: None (occurrence: None)
  Receive Date: 20080122
  Receipt Date: 20080114
  Transmission Date: 20080703
  Serious: Yes (Life-Threatening, Hospitalization)
  Sender: FDA-Public Use
  Company Number: GXKR2008GB00760

PATIENT
  Age: 38 Year
  Sex: Female
  Weight: 90 kg

DRUGS (6)
  1. PENICILLIN G [Suspect]
     Indication: CELLULITIS
     Dosage: 2.4 G, QID, INTRAVENOUS
     Route: 042
     Dates: start: 20071222, end: 20071227
  2. CLINDAMYCIN HCL [Suspect]
     Indication: CELLULITIS
     Dosage: 900 MG, QID, INTRAVENOUS
     Route: 042
     Dates: start: 20071222, end: 20071227
  3. ERYTHROMYCIN [Concomitant]
  4. GENTAMICIN [Concomitant]
  5. METRONIDAZOLE HCL [Concomitant]
  6. RANITIDINE [Concomitant]

REACTIONS (2)
  - SEPTIC SHOCK [None]
  - TOXIC EPIDERMAL NECROLYSIS [None]
